FAERS Safety Report 23972005 (Version 1)
Quarter: 2024Q2

REPORT INFORMATION
  Report Type: Spontaneous
  Country: US (occurrence: US)
  Receive Date: 20240613
  Receipt Date: 20240613
  Transmission Date: 20240715
  Serious: Yes (Hospitalization, Other)
  Sender: FDA-Public Use
  Company Number: US-GILEAD-2024-0676686

PATIENT
  Age: 79 Year
  Sex: Male

DRUGS (8)
  1. YESCARTA [Suspect]
     Active Substance: AXICABTAGENE CILOLEUCEL
     Indication: Diffuse large B-cell lymphoma
     Dosage: UNK
     Route: 065
     Dates: start: 20240429, end: 20240429
  2. JARDIANCE [Concomitant]
     Active Substance: EMPAGLIFLOZIN
     Indication: Type 2 diabetes mellitus
  3. GLIPIZIDE [Concomitant]
     Active Substance: GLIPIZIDE
     Indication: Type 2 diabetes mellitus
  4. METFORMIN [Concomitant]
     Active Substance: METFORMIN HYDROCHLORIDE
     Indication: Type 2 diabetes mellitus
  5. INSULIN ASPART [Concomitant]
     Active Substance: INSULIN ASPART
     Indication: Type 2 diabetes mellitus
  6. INSULIN GLARGINE [Concomitant]
     Active Substance: INSULIN GLARGINE
  7. LABETALOL [Concomitant]
     Active Substance: LABETALOL\LABETALOL HYDROCHLORIDE
     Indication: Hypertension
     Dosage: HOLD
  8. OMEPRAZOLE [Concomitant]
     Active Substance: DONEPEZIL HYDROCHLORIDE\OMEPRAZOLE\OMEPRAZOLE MAGNESIUM
     Indication: Gastrooesophageal reflux disease

REACTIONS (19)
  - BK virus infection [Unknown]
  - Intestinal pseudo-obstruction [Unknown]
  - Pancytopenia [Not Recovered/Not Resolved]
  - Venous thrombosis limb [Unknown]
  - Physical deconditioning [Recovering/Resolving]
  - Dysphonia [Recovering/Resolving]
  - Hypofibrinogenaemia [Not Recovered/Not Resolved]
  - Jugular vein thrombosis [Unknown]
  - Subclavian vein thrombosis [Unknown]
  - Deep vein thrombosis [Unknown]
  - Disseminated intravascular coagulation [Unknown]
  - Hypokalaemia [Unknown]
  - Pulmonary embolism [Unknown]
  - Respiratory failure [Unknown]
  - Acute kidney injury [Unknown]
  - Febrile neutropenia [Unknown]
  - Neutropenia [Unknown]
  - Immune effector cell-associated neurotoxicity syndrome [Unknown]
  - Cytokine release syndrome [Unknown]

NARRATIVE: CASE EVENT DATE: 20240506
